FAERS Safety Report 4587145-0 (Version None)
Quarter: 2005Q1

REPORT INFORMATION
  Report Type: 
  Country: None (occurrence: None)
  Receive Date: 20050218
  Receipt Date: 20050203
  Transmission Date: 20050727
  Serious: No
  Sender: FDA-Public Use
  Company Number: US-JNJFOC-20040909551

PATIENT
  Sex: Female
  Weight: 59.42 kg

DRUGS (1)
  1. ORTHO EVRA [Suspect]
     Indication: CONTRACEPTION
     Route: 062
     Dates: start: 20040801, end: 20040923

REACTIONS (5)
  - ARTHRALGIA [None]
  - BACK PAIN [None]
  - DYSPNOEA [None]
  - HYPOGLYCAEMIA [None]
  - NECK PAIN [None]
